FAERS Safety Report 7746941-9 (Version None)
Quarter: 2011Q3

REPORT INFORMATION
  Report Type: 
  Country: None (occurrence: None)
  Receive Date: 20110913
  Receipt Date: 20110830
  Transmission Date: 20111222
  Serious: Yes (Other)
  Sender: FDA-Public Use
  Company Number: PHHY2011BR78477

PATIENT
  Sex: Female

DRUGS (3)
  1. DIOVAN [Suspect]
     Indication: HYPERTENSION
     Dosage: 2 DF (320 MG) DAILY
  2. METFORMIN HYDROCHLORIDE [Concomitant]
     Dosage: UNK UKN, UNK
  3. BENICAR [Concomitant]
     Dosage: UNK UKN, UNK

REACTIONS (5)
  - SYNCOPE [None]
  - NERVOUSNESS [None]
  - BLOOD PRESSURE INCREASED [None]
  - SOMNOLENCE [None]
  - ACCIDENT [None]
